FAERS Safety Report 13674852 (Version 1)
Quarter: 2017Q2

REPORT INFORMATION
  Report Type: Spontaneous
  Country: US (occurrence: US)
  Receive Date: 20170621
  Receipt Date: 20170621
  Transmission Date: 20170830
  Serious: Yes (Hospitalization, Other)
  Sender: FDA-Public Use
  Company Number: US-SA-2017SA109163

PATIENT
  Age: 23 Year
  Sex: Male
  Weight: 109.2 kg

DRUGS (16)
  1. DOXORUBICIN [Suspect]
     Active Substance: DOXORUBICIN
     Route: 065
  2. BLINCYTO [Suspect]
     Active Substance: BLINATUMOMAB
     Indication: ACUTE LYMPHOCYTIC LEUKAEMIA
     Route: 065
     Dates: start: 2016
  3. FOLINIC ACID [Suspect]
     Active Substance: LEUCOVORIN
     Route: 065
  4. AMBIEN [Concomitant]
     Active Substance: ZOLPIDEM TARTRATE
  5. LOVENOX [Suspect]
     Active Substance: ENOXAPARIN SODIUM
     Route: 065
  6. CYCLOPHOSPHAMIDE. [Suspect]
     Active Substance: CYCLOPHOSPHAMIDE
     Route: 065
  7. DEXAMETHASONE. [Suspect]
     Active Substance: DEXAMETHASONE
     Route: 065
  8. METHOTREXATE. [Suspect]
     Active Substance: METHOTREXATE
     Route: 065
  9. VINCRISTINE [Suspect]
     Active Substance: VINCRISTINE
     Route: 065
  10. METHYLPREDNISOLONE. [Suspect]
     Active Substance: METHYLPREDNISOLONE
     Route: 065
  11. INOTUZUMAB OZOGAMICIN [Concomitant]
     Active Substance: INOTUZUMAB OZOGAMICIN
  12. CYTARABINE. [Suspect]
     Active Substance: CYTARABINE
     Route: 065
  13. NORCO [Concomitant]
     Active Substance: ACETAMINOPHEN\HYDROCODONE BITARTRATE
  14. TUMS [Concomitant]
     Active Substance: CALCIUM CARBONATE
  15. DOCQLACE [Concomitant]
     Active Substance: DOCUSATE SODIUM
  16. ZOVIRAX [Concomitant]
     Active Substance: ACYCLOVIR

REACTIONS (24)
  - Rectal fissure [Recovered/Resolved]
  - Enterobacter infection [Recovered/Resolved]
  - Dysphagia [Unknown]
  - Vena cava thrombosis [Recovered/Resolved]
  - Haemorrhage [Unknown]
  - Leukopenia [Unknown]
  - Polychromasia [Unknown]
  - Chest discomfort [Recovered/Resolved]
  - Nausea [Recovered/Resolved]
  - Vomiting [Recovered/Resolved]
  - Epistaxis [Recovered/Resolved]
  - Anaemia [Unknown]
  - Dizziness [Unknown]
  - Cerebrovascular accident [Recovered/Resolved]
  - Dysarthria [Unknown]
  - Asthenia [Unknown]
  - Klebsiella bacteraemia [Recovered/Resolved]
  - Staphylococcal bacteraemia [Recovered/Resolved]
  - Hypofibrinogenaemia [Recovered/Resolved]
  - Headache [Recovered/Resolved]
  - Neuropathy peripheral [Unknown]
  - Arthralgia [Unknown]
  - Pelvic venous thrombosis [Recovered/Resolved]
  - Urinary tract infection [Recovered/Resolved]

NARRATIVE: CASE EVENT DATE: 2016
